FAERS Safety Report 7006731-1 (Version None)
Quarter: 2010Q3

REPORT INFORMATION
  Report Type: 
  Country: None (occurrence: None)
  Receive Date: 20100922
  Receipt Date: 20100913
  Transmission Date: 20110219
  Serious: Yes (Hospitalization)
  Sender: FDA-Public Use
  Company Number: DE-BIOGENIDEC-2010BI031592

PATIENT
  Age: 39 Year
  Sex: Male
  Weight: 108 kg

DRUGS (1)
  1. AVONEX [Suspect]
     Indication: MULTIPLE SCLEROSIS
     Route: 030
     Dates: start: 20090703

REACTIONS (4)
  - OSTEOARTHRITIS [None]
  - PAIN IN EXTREMITY [None]
  - PHOBIA [None]
  - SLEEP DISORDER [None]
